FAERS Safety Report 5276245-8 (Version None)
Quarter: 2007Q1

REPORT INFORMATION
  Report Type: 
  Country: None (occurrence: None)
  Receive Date: 20070326
  Receipt Date: 20070312
  Transmission Date: 20070707
  Serious: Yes (Hospitalization, Other)
  Sender: FDA-Public Use
  Company Number: TW-ELI_LILLY_AND_COMPANY-TW200703003755

PATIENT
  Age: 51 Year
  Sex: Male

DRUGS (5)
  1. FLUOXETINE HYDROCHLORIDE [Suspect]
     Indication: MAJOR DEPRESSION
     Dosage: 20 MG, DAILY (1/D)
  2. FLUOXETINE HYDROCHLORIDE [Suspect]
     Dosage: 40 MG, DAILY (1/D)
  3. BUPROPION HYDROCHLORIDE [Concomitant]
     Dosage: 150 MG, DAILY (1/D)
  4. BROMAZEPAM [Concomitant]
     Dosage: 40 MG, DAILY (1/D)
  5. ALPRAZOLAM [Concomitant]
     Dosage: 1 MG, DAILY (1/D)

REACTIONS (4)
  - ASTHENIA [None]
  - DELIRIUM [None]
  - DRUG INTERACTION [None]
  - FATIGUE [None]
